FAERS Safety Report 12721737 (Version 1)
Quarter: 2016Q3

REPORT INFORMATION
  Report Type: Spontaneous
  Country: JP (occurrence: JP)
  Receive Date: 20160907
  Receipt Date: 20160907
  Transmission Date: 20161109
  Serious: Yes (Hospitalization)
  Sender: FDA-Public Use
  Company Number: JP-ASTRAZENECA-2016SE94395

PATIENT
  Sex: Female

DRUGS (4)
  1. BYETTA [Suspect]
     Active Substance: EXENATIDE
     Indication: APPETITE DISORDER
     Dosage: DOSE UNKNOWN
     Route: 058
     Dates: start: 201605
  2. ANTIDIABETIC AGENTS [Concomitant]
     Active Substance: UNSPECIFIED INGREDIENT
     Dosage: DOSE UNKNOWN
     Route: 065
  3. BYETTA [Suspect]
     Active Substance: EXENATIDE
     Indication: APPETITE DISORDER
     Dosage: DOSE UNKNOWN
     Route: 058
     Dates: start: 2014
  4. BYETTA [Suspect]
     Active Substance: EXENATIDE
     Indication: APPETITE DISORDER
     Dosage: DOSE UNKNOWN
     Route: 058

REACTIONS (6)
  - Decreased appetite [Recovered/Resolved]
  - Hyperphagia [Unknown]
  - Hunger [Unknown]
  - Blood glucose increased [Unknown]
  - Nausea [Unknown]
  - Off label use [Unknown]

NARRATIVE: CASE EVENT DATE: 2014
